FAERS Safety Report 4603050-5 (Version None)
Quarter: 2005Q1

REPORT INFORMATION
  Report Type: 
  Country: None (occurrence: None)
  Receive Date: 20050307
  Receipt Date: 20050223
  Transmission Date: 20050727
  Serious: Yes (Life-Threatening)
  Sender: FDA-Public Use
  Company Number: 2005036362

PATIENT
  Age: 7 Year
  Sex: Male

DRUGS (3)
  1. ATARAX [Suspect]
     Indication: ILL-DEFINED DISORDER
     Dosage: SEE IMAGE
     Route: 048
     Dates: start: 20050128, end: 20050128
  2. ATARAX [Suspect]
     Indication: ILL-DEFINED DISORDER
     Dosage: SEE IMAGE
     Route: 048
     Dates: start: 20050128, end: 20050128
  3. FLUDEOXYGLUCOSE (18F) (FLUDEOXYGLUCOSE (18F)) [Suspect]
     Dosage: 208 GBQ, INTRAVENOUS
     Route: 042
     Dates: start: 20050128, end: 20050128

REACTIONS (4)
  - ANGIONEUROTIC OEDEMA [None]
  - COUGH [None]
  - PAIN [None]
  - THROAT TIGHTNESS [None]
